FAERS Safety Report 4613483-9 (Version None)
Quarter: 2005Q1

REPORT INFORMATION
  Report Type: 
  Country: None (occurrence: None)
  Receive Date: 20050321
  Receipt Date: 20050308
  Transmission Date: 20050727
  Serious: Yes (Hospitalization, Other)
  Sender: FDA-Public Use
  Company Number: GB-JNJFOC-20050302301

PATIENT
  Sex: Male
  Weight: 87 kg

DRUGS (11)
  1. REMICADE [Suspect]
     Indication: RHEUMATOID ARTHRITIS
     Route: 042
  2. METHOTREXATE [Concomitant]
  3. PREDNISOLONE [Concomitant]
  4. ALENDRONATE SODIUM [Concomitant]
  5. CO-CODAMOL [Concomitant]
  6. CO-CODAMOL [Concomitant]
  7. DIHYDROCODEINE [Concomitant]
  8. LANSOPRAZOLE [Concomitant]
  9. COMBIVENT [Concomitant]
  10. COMBIVENT [Concomitant]
  11. ORAMORPH SR [Concomitant]

REACTIONS (3)
  - ABDOMINAL PAIN [None]
  - ANAESTHETIC COMPLICATION NEUROLOGICAL [None]
  - APPENDICECTOMY [None]
